FAERS Safety Report 6241903-5 (Version None)
Quarter: 2009Q2

REPORT INFORMATION
  Report Type: 
  Country: None (occurrence: None)
  Receive Date: 20090623
  Receipt Date: 20090611
  Transmission Date: 20091009
  Serious: Yes (Disabling)
  Sender: FDA-Public Use
  Company Number: GB-PFIZER INC-2009225634

PATIENT
  Age: 72 Year

DRUGS (7)
  1. EXEMESTANE [Suspect]
     Dosage: 25 MG, UNK
     Route: 048
     Dates: start: 20080623
  2. BISOPROLOL FUMARATE [Concomitant]
  3. FINASTERIDE [Concomitant]
  4. LANSOPRAZOLE [Concomitant]
  5. LISINOPRIL [Concomitant]
  6. SIMVASTATIN [Concomitant]
  7. WARFARIN SODIUM [Concomitant]

REACTIONS (1)
  - ISCHAEMIC STROKE [None]
